FAERS Safety Report 8890497 (Version 1)
Quarter: 2012Q4

REPORT INFORMATION
  Report Type: 
  Country: NL (occurrence: NL)
  Receive Date: 20121107
  Receipt Date: 20121107
  Transmission Date: 20130627
  Serious: Yes (Death, Disabling)
  Sender: FDA-Public Use
  Company Number: NL-ACTELION-A-CH2012-73629

PATIENT
  Age: 74 Year
  Sex: Female
  Weight: 45 kg

DRUGS (4)
  1. TRACLEER [Suspect]
     Indication: PULMONARY ARTERIAL HYPERTENSION
     Dosage: 62.5 mg, bid
     Route: 048
     Dates: start: 2010, end: 20121027
  2. TRACLEER [Suspect]
     Dosage: 62.5 mg, bid
     Route: 048
     Dates: start: 20100901, end: 20100930
  3. TRACLEER [Suspect]
     Dosage: 125 mg, bid
     Route: 048
     Dates: start: 20101001
  4. SILDENAFIL [Concomitant]
     Dosage: UNK
     Dates: start: 20100401, end: 20121027

REACTIONS (4)
  - Right ventricular failure [Fatal]
  - Hypotension [Fatal]
  - Multi-organ failure [Fatal]
  - Dyspnoea [Recovering/Resolving]
